FAERS Safety Report 6593640-5 (Version None)
Quarter: 2010Q1

REPORT INFORMATION
  Report Type: 
  Country: None (occurrence: None)
  Receive Date: 20100222
  Receipt Date: 20090925
  Transmission Date: 20100710
  Serious: Yes (Hospitalization)
  Sender: FDA-Public Use
  Company Number: US-BRISTOL-MYERS SQUIBB COMPANY-14793939

PATIENT
  Age: 58 Year
  Sex: Female
  Weight: 77 kg

DRUGS (6)
  1. ORENCIA [Suspect]
     Dosage: 2ND INFUSION ON 03SEP09 3RD INFUSION ON 17SEP09
     Dates: start: 20090820
  2. METHOTREXATE TABS [Concomitant]
     Dosage: 25 MG, 6 TABLETS.
     Route: 048
  3. LYRICA [Concomitant]
     Dosage: ABOUT 1 TO 1.5 WEEKS BEFORE STARTING ORENCIA
     Route: 048
  4. NEURONTIN [Concomitant]
     Dosage: ABOUT 1 TO 1.5 WEEKS BEFORE STARTING ORENCIA
     Route: 048
  5. MULTI-VITAMIN [Concomitant]
  6. FOLIC ACID [Concomitant]

REACTIONS (9)
  - ANXIETY [None]
  - ASTHENIA [None]
  - BLOOD PRESSURE INCREASED [None]
  - CHEST PAIN [None]
  - DYSPNOEA [None]
  - HEADACHE [None]
  - MICTURITION URGENCY [None]
  - PRESYNCOPE [None]
  - SENSATION OF FOREIGN BODY [None]
